FAERS Safety Report 17939413 (Version 1)
Quarter: 2020Q2

REPORT INFORMATION
  Report Type: Spontaneous
  Country: JP (occurrence: JP)
  Receive Date: 20200624
  Receipt Date: 20200624
  Transmission Date: 20200714
  Serious: Yes (Hospitalization, Other)
  Sender: FDA-Public Use
  Company Number: NVSC2020JP177384

PATIENT
  Age: 94 Year
  Sex: Female

DRUGS (3)
  1. RIVASTIGMINE. [Suspect]
     Active Substance: RIVASTIGMINE
     Indication: DEMENTIA ALZHEIMER^S TYPE
     Dosage: 4.5 MG
     Route: 062
     Dates: start: 20200520
  2. ARICEPT [Concomitant]
     Active Substance: DONEPEZIL HYDROCHLORIDE
     Indication: PRODUCT USED FOR UNKNOWN INDICATION
     Dosage: UNK
     Route: 065
  3. NEUPRO [Suspect]
     Active Substance: ROTIGOTINE
     Indication: PRODUCT USED FOR UNKNOWN INDICATION
     Dosage: 4.5 MG
     Route: 062
     Dates: start: 20200422, end: 20200520

REACTIONS (4)
  - Pyrexia [Unknown]
  - Seronegative arthritis [Unknown]
  - Gastrointestinal haemorrhage [Unknown]
  - Anaemia [Unknown]

NARRATIVE: CASE EVENT DATE: 20200520
